FAERS Safety Report 7484367-6 (Version None)
Quarter: 2011Q2

REPORT INFORMATION
  Report Type: 
  Country: None (occurrence: None)
  Receive Date: 20110517
  Receipt Date: 20110510
  Transmission Date: 20111010
  Serious: Yes (Death)
  Sender: FDA-Public Use
  Company Number: JP-BRISTOL-MYERS SQUIBB COMPANY-15745524

PATIENT

DRUGS (2)
  1. TS-1 [Suspect]
     Indication: NON-SMALL CELL LUNG CANCER
     Dosage: DAY 1-14
  2. CISPLATIN [Suspect]
     Indication: NON-SMALL CELL LUNG CANCER
     Dosage: DAY 1
     Route: 041

REACTIONS (1)
  - DEATH [None]
